FAERS Safety Report 7292821-5 (Version None)
Quarter: 2011Q1

REPORT INFORMATION
  Report Type: 
  Country: None (occurrence: None)
  Receive Date: 20110215
  Receipt Date: 20110207
  Transmission Date: 20110831
  Serious: Yes (Hospitalization, Other)
  Sender: FDA-Public Use
  Company Number: JP-PFIZER INC-2011018924

PATIENT
  Sex: Male
  Weight: 52 kg

DRUGS (13)
  1. UBRETID [Concomitant]
     Indication: DYSURIA
     Dosage: 5 MG, 1X/DAY
     Route: 048
  2. UBRETID [Concomitant]
  3. TAMSULOSIN HCL [Concomitant]
     Indication: BENIGN PROSTATIC HYPERPLASIA
     Dosage: 0.2 MG, 2X/DAY
     Route: 048
  4. CRESTOR [Concomitant]
     Indication: HYPERCHOLESTEROLAEMIA
     Dosage: 2.5 MG, 1X/DAY
     Route: 048
  5. UBRETID [Concomitant]
     Indication: NEUROGENIC BLADDER
  6. LYRICA [Suspect]
     Dosage: 50 MG, 2X/DAY
     Route: 048
     Dates: start: 20110118, end: 20110119
  7. AMLODIPINE BESYLATE/VALSARTAN [Concomitant]
     Indication: HYPERTENSION
     Dosage: UNK
     Route: 048
     Dates: end: 20110125
  8. ARTIST [Concomitant]
     Indication: HYPERTENSION
     Dosage: 10 MG, 1X/DAY
     Route: 048
  9. DEPAS [Concomitant]
     Indication: ANXIETY DISORDER
     Dosage: 0.5 MG, 1X/DAY
     Route: 048
     Dates: start: 20110104, end: 20110122
  10. PANALDINE [Concomitant]
     Indication: CARDIAC FAILURE CHRONIC
     Dosage: 400 MG, 2X/DAY
     Route: 048
     Dates: start: 20110101, end: 20110119
  11. ASPIRIN [Concomitant]
     Indication: CARDIAC FAILURE CHRONIC
     Dosage: 100 MG, 1X/DAY
     Route: 048
     Dates: start: 20110101, end: 20110119
  12. PARIET [Concomitant]
     Indication: REFLUX OESOPHAGITIS
     Dosage: 10 MG, 1X/DAY
     Route: 048
  13. LYRICA [Suspect]
     Indication: NEURALGIA
     Dosage: 25 MG, 2X/DAY
     Route: 048
     Dates: start: 20110111, end: 20110117

REACTIONS (4)
  - BLOOD PRESSURE INCREASED [None]
  - LOSS OF CONSCIOUSNESS [None]
  - HYPOTENSION [None]
  - CONTUSION [None]
